FAERS Safety Report 19321015 (Version 1)
Quarter: 2021Q2

REPORT INFORMATION
  Report Type: Spontaneous
  Country: US (occurrence: US)
  Receive Date: 20210528
  Receipt Date: 20210528
  Transmission Date: 20210717
  Serious: Yes (Hospitalization)
  Sender: FDA-Public Use
  Company Number: None

PATIENT
  Age: 83 Year
  Sex: Male

DRUGS (15)
  1. LUMIGAN [Concomitant]
     Active Substance: BIMATOPROST
  2. ASPIRIN. [Concomitant]
     Active Substance: ASPIRIN
  3. PROBIOTIC [Concomitant]
     Active Substance: PROBIOTICS NOS
  4. EYE OMEGA [Concomitant]
  5. ADVIL [Concomitant]
     Active Substance: IBUPROFEN
  6. TASIGNA [Suspect]
     Active Substance: NILOTINIB
     Indication: CHRONIC MYELOID LEUKAEMIA
     Route: 048
     Dates: start: 20150911
  7. NICARDIPINE [Concomitant]
     Active Substance: NICARDIPINE
  8. LUTEIN [Concomitant]
     Active Substance: LUTEIN
  9. CALCIUM D [Concomitant]
     Active Substance: CALCIUM\VITAMIN D
  10. DOCUSATE [Concomitant]
     Active Substance: DOCUSATE
  11. LORATADINE. [Concomitant]
     Active Substance: LORATADINE
  12. IRON [Concomitant]
     Active Substance: IRON
  13. COMBIGAN [Concomitant]
     Active Substance: BRIMONIDINE TARTRATE\TIMOLOL MALEATE
  14. ATORVASTATIN [Concomitant]
     Active Substance: ATORVASTATIN
  15. IRBESARTAN. [Concomitant]
     Active Substance: IRBESARTAN

REACTIONS (1)
  - Hospitalisation [None]

NARRATIVE: CASE EVENT DATE: 20210420
